FAERS Safety Report 15654211 (Version 1)
Quarter: 2018Q4

REPORT INFORMATION
  Report Type: Spontaneous
  Country: US (occurrence: US)
  Receive Date: 20181125
  Receipt Date: 20181125
  Transmission Date: 20190205
  Serious: No
  Sender: FDA-Public Use
  Company Number: US-ALVOGEN-2018-ALVOGEN-097097

PATIENT
  Sex: Female

DRUGS (1)
  1. FENTANYL. [Suspect]
     Active Substance: FENTANYL
     Indication: INTERVERTEBRAL DISC DEGENERATION
     Route: 061
     Dates: start: 2017

REACTIONS (6)
  - Product adhesion issue [Unknown]
  - Pain [Unknown]
  - Nervousness [Unknown]
  - Anxiety [Unknown]
  - Withdrawal syndrome [Unknown]
  - Product dose omission [Unknown]
